FAERS Safety Report 5338909-7 (Version None)
Quarter: 2007Q2

REPORT INFORMATION
  Report Type: 
  Country: None (occurrence: None)
  Receive Date: 20070404
  Receipt Date: 20061213
  Transmission Date: 20071010
  Serious: Yes (Hospitalization, Other)
  Sender: FDA-Public Use
  Company Number: HQWYE088214DEC06

PATIENT
  Age: 37 Year
  Sex: Female
  Weight: 59.02 kg

DRUGS (1)
  1. ALAVERT [Suspect]
     Indication: NASAL CONGESTION
     Dosage: 1 TABLET 1X PER 1 DAY ORAL
     Route: 048
     Dates: start: 20061209, end: 20061209

REACTIONS (3)
  - DRUG HYPERSENSITIVITY [None]
  - HEART RATE INCREASED [None]
  - MUSCLE SPASMS [None]
